FAERS Safety Report 6993665-1 (Version None)
Quarter: 2010Q3

REPORT INFORMATION
  Report Type: 
  Country: None (occurrence: None)
  Receive Date: 20100917
  Receipt Date: 20071106
  Transmission Date: 20110219
  Serious: Yes (Hospitalization)
  Sender: FDA-Public Use
  Company Number: US-ASTRAZENECA-2007UW13942

PATIENT
  Age: 32 Year
  Sex: Male
  Weight: 104.3 kg

DRUGS (13)
  1. SEROQUEL [Suspect]
     Indication: SCHIZOPHRENIA
     Route: 048
     Dates: start: 20010103
  2. SEROQUEL [Suspect]
     Indication: BIPOLAR DISORDER
     Route: 048
     Dates: start: 20010103
  3. SEROQUEL [Suspect]
     Dosage: 100 MG AM, 300 MG QHS
     Route: 048
     Dates: start: 20010108
  4. SEROQUEL [Suspect]
     Dosage: 100 MG AM, 300 MG QHS
     Route: 048
     Dates: start: 20010108
  5. ZYPREXA [Concomitant]
     Dosage: 10 AND 20 MG
     Dates: start: 19970619, end: 20010112
  6. NAVANE (THIOTHIXINE) [Concomitant]
  7. STELAZINE [Concomitant]
  8. RISPERDAL [Concomitant]
  9. DEPAKOTE [Concomitant]
     Dates: start: 19960618
  10. LISINOPRIL [Concomitant]
     Dates: start: 20030507
  11. ATENOLOL [Concomitant]
     Dates: start: 20061023
  12. HYDROCHLOROTHIAZIDE [Concomitant]
     Dates: start: 20061023
  13. LITHIUM CARBONATE [Concomitant]
     Dates: start: 20061023

REACTIONS (1)
  - DIABETES MELLITUS [None]
